FAERS Safety Report 14334068 (Version 1)
Quarter: 2017Q4

REPORT INFORMATION
  Report Type: Spontaneous
  Country: PL (occurrence: PL)
  Receive Date: 20171228
  Receipt Date: 20171228
  Transmission Date: 20180321
  Serious: Yes (Other)
  Sender: FDA-Public Use
  Company Number: PHHY2017PL193103

PATIENT
  Sex: Female
  Weight: 14.1 kg

DRUGS (1)
  1. EXJADE [Suspect]
     Active Substance: DEFERASIROX
     Indication: ACUTE MYELOID LEUKAEMIA
     Dosage: 250 MG, UNK (18 MG/KG OF BODY WEIGHT)
     Route: 048
     Dates: start: 20170518

REACTIONS (2)
  - Graft versus host disease [Unknown]
  - Diarrhoea [Unknown]
